FAERS Safety Report 5481167-3 (Version None)
Quarter: 2007Q4

REPORT INFORMATION
  Report Type: 
  Country: None (occurrence: None)
  Receive Date: 20071010
  Receipt Date: 20071003
  Transmission Date: 20080405
  Serious: Yes (Other)
  Sender: FDA-Public Use
  Company Number: PHBS2007IE16544

PATIENT
  Sex: Female

DRUGS (1)
  1. FEMARA [Suspect]
     Indication: DRUG DISPENSING ERROR
     Route: 065

REACTIONS (5)
  - CIRCULATORY COLLAPSE [None]
  - DRUG DISPENSING ERROR [None]
  - HOT FLUSH [None]
  - MENOPAUSAL SYMPTOMS [None]
  - RASH [None]
